FAERS Safety Report 6435561-4 (Version None)
Quarter: 2009Q4

REPORT INFORMATION
  Report Type: 
  Country: None (occurrence: None)
  Receive Date: 20091111
  Receipt Date: 20091030
  Transmission Date: 20100525
  Serious: Yes (Other)
  Sender: FDA-Public Use
  Company Number: RU-JNJFOC-20091100474

PATIENT

DRUGS (1)
  1. INFLIXIMAB [Suspect]
     Indication: RHEUMATOID ARTHRITIS
     Dosage: AT 0, 2 AND 6 WEEKS AND THEN ONCE EVERY 8 WEEKS (DATES NOT PROVIDED)
     Route: 042

REACTIONS (1)
  - TUBERCULOSIS [None]
